FAERS Safety Report 6826246-0 (Version None)
Quarter: 2010Q3

REPORT INFORMATION
  Report Type: 
  Country: None (occurrence: None)
  Receive Date: 20100709
  Receipt Date: 20100625
  Transmission Date: 20110219
  Serious: Yes (Hospitalization, Other)
  Sender: FDA-Public Use
  Company Number: PHHY2010FR39033

PATIENT
  Sex: Male
  Weight: 65 kg

DRUGS (5)
  1. AFINITOR [Suspect]
     Indication: METASTATIC RENAL CELL CARCINOMA
     Dosage: 10 MG, DAILY
     Route: 048
     Dates: start: 20100325, end: 20100411
  2. PREVISCAN [Concomitant]
  3. SKENAN [Concomitant]
     Dosage: 20 MG, BID
  4. ACTISKENAN [Concomitant]
     Dosage: 10 MG X 6 (PRN)
  5. ESOMEPRAZOLE MAGNESIUM [Concomitant]

REACTIONS (6)
  - ASTHENIA [None]
  - DECREASED APPETITE [None]
  - ELECTROLYTE IMBALANCE [None]
  - FATIGUE [None]
  - GASTROINTESTINAL DISORDER [None]
  - GASTROINTESTINAL OBSTRUCTION [None]
